FAERS Safety Report 8185791-9 (Version None)
Quarter: 2012Q1

REPORT INFORMATION
  Report Type: 
  Country: None (occurrence: None)
  Receive Date: 20120305
  Receipt Date: 20120302
  Transmission Date: 20120608
  Serious: Yes (Life-Threatening, Hospitalization, Disabling, Other)
  Sender: FDA-Public Use
  Company Number: PHEH2012US001161

PATIENT
  Sex: Female
  Weight: 69 kg

DRUGS (6)
  1. LEVETIRACETAM [Concomitant]
  2. GILENYA [Suspect]
     Indication: RELAPSING-REMITTING MULTIPLE SCLEROSIS
     Dosage: 0.5 MG, QD
     Route: 048
     Dates: start: 20111013
  3. TRAMADOL HCL [Concomitant]
     Dosage: UNK UKN, UNK
  4. BACLOFEN [Concomitant]
     Dosage: UNK UKN, UNK
     Route: 048
  5. ASPIRIN [Concomitant]
  6. KEPPRA [Concomitant]

REACTIONS (61)
  - SPEECH DISORDER [None]
  - JC VIRUS TEST POSITIVE [None]
  - HYPERTONIA [None]
  - PRURITUS [None]
  - CEREBRAL INFARCTION [None]
  - HEMIPLEGIA [None]
  - PARAPARESIS [None]
  - BREATH SOUNDS ABNORMAL [None]
  - PNEUMONIA [None]
  - CSF TEST ABNORMAL [None]
  - EXTENSOR PLANTAR RESPONSE [None]
  - HOFFMANN'S SIGN [None]
  - BLOOD CHLORIDE INCREASED [None]
  - BLOOD GLUCOSE INCREASED [None]
  - BLOOD CALCIUM DECREASED [None]
  - HEMIPARESIS [None]
  - HYPOAESTHESIA [None]
  - DYSKINESIA [None]
  - DEEP VEIN THROMBOSIS [None]
  - ACUTE RESPIRATORY FAILURE [None]
  - ASPIRATION [None]
  - LYMPHOCYTE PERCENTAGE INCREASED [None]
  - CLONUS [None]
  - MALAISE [None]
  - APHASIA [None]
  - FALL [None]
  - CAROTID ARTERY OCCLUSION [None]
  - CEREBRAL ARTERY OCCLUSION [None]
  - TACHYCARDIA [None]
  - LEUKOCYTOSIS [None]
  - VOMITING [None]
  - FATIGUE [None]
  - NAUSEA [None]
  - BLOOD ALBUMIN DECREASED [None]
  - HEADACHE [None]
  - ISCHAEMIC STROKE [None]
  - HYPOKINESIA [None]
  - RHONCHI [None]
  - CAROTID ARTERY THROMBOSIS [None]
  - LETHARGY [None]
  - C-REACTIVE PROTEIN INCREASED [None]
  - UNRESPONSIVE TO STIMULI [None]
  - NERVOUS SYSTEM DISORDER [None]
  - HAEMOGLOBIN INCREASED [None]
  - HYPOTENSION [None]
  - FLUSHING [None]
  - HYPERREFLEXIA [None]
  - MUSCLE SPASTICITY [None]
  - UPPER AIRWAY OBSTRUCTION [None]
  - RESPIRATORY RATE INCREASED [None]
  - BURNING SENSATION [None]
  - PALLOR [None]
  - VIRAL INFECTION [None]
  - INFLUENZA LIKE ILLNESS [None]
  - CHILLS [None]
  - PYREXIA [None]
  - ALOPECIA [None]
  - LUNG INFILTRATION [None]
  - CAROTID ARTERY DISSECTION [None]
  - BLOOD PRESSURE DIASTOLIC INCREASED [None]
  - ELECTROENCEPHALOGRAM ABNORMAL [None]
